FAERS Safety Report 13149690 (Version 2)
Quarter: 2017Q1

REPORT INFORMATION
  Report Type: Report from Study
  Country: US (occurrence: US)
  Receive Date: 20170124
  Receipt Date: 20170124
  Transmission Date: 20170428
  Serious: No
  Sender: FDA-Public Use
  Company Number: US-AMGEN-USASL2016184283

PATIENT
  Age: 76 Year
  Sex: Female

DRUGS (3)
  1. REPATHA [Suspect]
     Active Substance: EVOLOCUMAB
     Indication: PRODUCT USED FOR UNKNOWN INDICATION
     Dosage: UNK, UNK
     Route: 065
  2. ALEVE [Concomitant]
     Active Substance: NAPROXEN SODIUM
     Indication: ARTHRITIS
  3. FLU [Concomitant]
     Active Substance: INFLUENZA VIRUS VACCINE

REACTIONS (5)
  - Pain [Unknown]
  - Headache [Unknown]
  - Influenza like illness [Unknown]
  - Nasal congestion [Unknown]
  - Pain in extremity [Unknown]

NARRATIVE: CASE EVENT DATE: 201610
